FAERS Safety Report 8234297-7 (Version None)
Quarter: 2012Q1

REPORT INFORMATION
  Report Type: 
  Country: None (occurrence: None)
  Receive Date: 20120326
  Receipt Date: 20120319
  Transmission Date: 20120608
  Serious: Yes (Hospitalization)
  Sender: FDA-Public Use
  Company Number: GB-ROCHE-1050571

PATIENT
  Sex: Male
  Weight: 77 kg

DRUGS (7)
  1. DOMPERIDONE [Concomitant]
  2. EPIRUBICIN HYDROCHLORIDE [Suspect]
     Indication: GASTRIC CANCER
     Route: 042
     Dates: start: 20111018, end: 20111018
  3. CAPECITABINE [Suspect]
     Indication: GASTRIC CANCER
     Route: 048
     Dates: start: 20111018, end: 20111108
  4. CISPLATIN [Suspect]
     Indication: GASTRIC CANCER
     Route: 042
     Dates: start: 20111018, end: 20111018
  5. AVASTIN [Suspect]
     Indication: GASTRIC CANCER
     Route: 042
     Dates: start: 20111018, end: 20111018
  6. ATENOLOL [Concomitant]
     Route: 048
  7. OMEPRAZOLE [Concomitant]

REACTIONS (1)
  - GASTRITIS [None]
